FAERS Safety Report 16423113 (Version 1)
Quarter: 2019Q2

REPORT INFORMATION
  Report Type: Spontaneous
  Country: US (occurrence: US)
  Receive Date: 20190612
  Receipt Date: 20190612
  Transmission Date: 20190711
  Serious: No
  Sender: FDA-Public Use
  Company Number: US-COVIS PHARMA B.V.-2018COV03700

PATIENT
  Age: 76 Year
  Sex: Male
  Weight: 94.79 kg

DRUGS (11)
  1. VENLAFAXINE [Concomitant]
     Active Substance: VENLAFAXINE HYDROCHLORIDE
  2. BYDUREON [Suspect]
     Active Substance: EXENATIDE
     Indication: TYPE 2 DIABETES MELLITUS
     Route: 058
     Dates: start: 20180411
  3. ASPIRIN. [Concomitant]
     Active Substance: ASPIRIN
     Dosage: 325 MG
  4. MELOXICAM. [Concomitant]
     Active Substance: MELOXICAM
     Dosage: 15 MG
  5. OMEPRAZOLE MAGNESIUM. [Suspect]
     Active Substance: OMEPRAZOLE MAGNESIUM
     Indication: DYSPEPSIA
     Route: 048
  6. GABAPENTIN. [Concomitant]
     Active Substance: GABAPENTIN
     Dosage: 600 MG
     Route: 048
  7. LABETALOL [Concomitant]
     Active Substance: LABETALOL\LABETALOL HYDROCHLORIDE
     Dosage: 300 MG
     Route: 048
  8. SIMVASTATIN. [Concomitant]
     Active Substance: SIMVASTATIN
     Dosage: 20 MG
  9. TERAZOSIN [Concomitant]
     Active Substance: TERAZOSIN\TERAZOSIN HYDROCHLORIDE
     Dosage: 10 MG
  10. FLU SHOT [Suspect]
     Active Substance: INFLUENZA VIRUS VACCINE
     Dates: start: 20180411, end: 20180411
  11. LISINOPRIL. [Suspect]
     Active Substance: LISINOPRIL
     Dosage: 20 MG
     Route: 048

REACTIONS (22)
  - Snoring [Unknown]
  - Herpes zoster [Not Recovered/Not Resolved]
  - Weight decreased [Unknown]
  - Pain [Unknown]
  - Nausea [Recovering/Resolving]
  - Malaise [Recovering/Resolving]
  - Osteoarthritis [Not Recovered/Not Resolved]
  - Headache [Recovering/Resolving]
  - Injection site extravasation [Unknown]
  - Sleep apnoea syndrome [Unknown]
  - Injection site mass [Unknown]
  - Injection site pain [Recovered/Resolved]
  - Injection site haemorrhage [Unknown]
  - Blood glucose increased [Not Recovered/Not Resolved]
  - Oropharyngeal pain [Unknown]
  - Underdose [Unknown]
  - Nervous system disorder [Unknown]
  - Abdominal discomfort [Recovering/Resolving]
  - Blood pressure systolic abnormal [Unknown]
  - Altered state of consciousness [Recovered/Resolved]
  - Nervousness [Unknown]
  - Back pain [Unknown]

NARRATIVE: CASE EVENT DATE: 2018
